FAERS Safety Report 8796786 (Version 4)
Quarter: 2014Q1

REPORT INFORMATION
  Report Type: Report from Study
  Country: JP (occurrence: JP)
  Receive Date: 20120919
  Receipt Date: 20140226
  Transmission Date: 20141002
  Serious: Yes (Hospitalization, Other)
  Sender: FDA-Public Use
  Company Number: JP-VERTEX PHARMACEUTICAL INC.-AE-2012-010001

PATIENT
  Age: 60 Year
  Sex: Female

DRUGS (10)
  1. VX-950 (TELAPREVIR) [Suspect]
     Indication: CHRONIC HEPATITIS C
     Dosage: 1500 MG, QD
     Route: 048
     Dates: start: 20120523, end: 20120617
  2. PEGINTRON [Suspect]
     Indication: CHRONIC HEPATITIS C
     Dosage: 1.5 ?G/KG, QW
     Route: 058
     Dates: start: 20120523, end: 20120617
  3. REBETOL [Suspect]
     Indication: CHRONIC HEPATITIS C
     Dosage: 400 MG, QD
     Route: 048
     Dates: start: 20120523, end: 20120610
  4. REBETOL [Suspect]
     Dosage: 200 MG, QD
     Route: 048
     Dates: start: 20120611, end: 20120617
  5. GLYCYRON [Concomitant]
     Dosage: 6 DF, QD
     Route: 048
  6. REPTOR [Concomitant]
     Dosage: 600 MG, QD
     Route: 048
  7. OLMETEC [Concomitant]
     Dosage: 40 MG, QD
     Route: 048
  8. TOWAMIN [Concomitant]
     Dosage: 25 MG, QD
     Route: 048
  9. AMLODIN [Concomitant]
     Dosage: 2.5 MG, QD
     Route: 048
  10. LIMAS [Concomitant]
     Dosage: 600 MG, QD
     Route: 048

REACTIONS (3)
  - Rash generalised [Recovering/Resolving]
  - Rash [Recovering/Resolving]
  - Anaemia [Recovered/Resolved]
